FAERS Safety Report 6266636-0 (Version None)
Quarter: 2009Q3

REPORT INFORMATION
  Report Type: 
  Country: None (occurrence: None)
  Receive Date: 20090710
  Receipt Date: 20090707
  Transmission Date: 20100115
  Serious: Yes (Hospitalization)
  Sender: FDA-Public Use
  Company Number: SPV1-2009-00711

PATIENT
  Age: 62 Year
  Sex: Male

DRUGS (9)
  1. FOSRENOL [Suspect]
     Indication: HYPERPHOSPHATAEMIA
     Dosage: 1000 MG, ONE TABLET EACH MEAL, ORAL
     Route: 048
     Dates: start: 20050411
  2. HECTOROL [Concomitant]
  3. INSULIN (INSULIN) [Concomitant]
  4. SENSIPAR [Concomitant]
  5. ASPIRIN [Concomitant]
  6. NEURONTIN [Concomitant]
  7. NEPHROCAPS (ASCORBIC ACID, BIOTIN, CYANOCOBALAMIN, FOLIC ACID, NICOTIN [Concomitant]
  8. METOPROLOL SUCCINATE [Concomitant]
  9. NORVASC [Concomitant]

REACTIONS (1)
  - ENDOCARDITIS STAPHYLOCOCCAL [None]
